FAERS Safety Report 10233212 (Version 3)
Quarter: 2016Q1

REPORT INFORMATION
  Report Type: Spontaneous
  Country: US (occurrence: US)
  Receive Date: 20140612
  Receipt Date: 20160329
  Transmission Date: 20160525
  Serious: No
  Sender: FDA-Public Use
  Company Number: US-MALLINCKRODT-T201401896

PATIENT
  Age: 49 Year
  Sex: Male

DRUGS (1)
  1. XARTEMIS XR [Suspect]
     Active Substance: ACETAMINOPHEN\OXYCODONE HYDROCHLORIDE
     Indication: PROCEDURAL PAIN
     Dosage: 7.5/325 MG, TWO BID
     Route: 048
     Dates: start: 20140408, end: 20140409

REACTIONS (1)
  - Hypoaesthesia [Recovered/Resolved]

NARRATIVE: CASE EVENT DATE: 20140408
